FAERS Safety Report 10034614 (Version 1)
Quarter: 2014Q1

REPORT INFORMATION
  Report Type: Spontaneous
  Country: IT (occurrence: IT)
  Receive Date: 20140325
  Receipt Date: 20140325
  Transmission Date: 20141002
  Serious: Yes (Other)
  Sender: FDA-Public Use
  Company Number: IT-MYLANLABS-2014S1005900

PATIENT
  Age: 71 Year
  Sex: Female

DRUGS (3)
  1. IRINOTECAN HYDROCHLORIDE TRIHYDRATE [Suspect]
     Indication: COLON CANCER
     Dates: start: 20131112, end: 20140122
  2. ERBITUX [Suspect]
     Indication: COLON CANCER
     Dosage: 300 MG CYCLICAL
     Route: 042
     Dates: start: 20131112, end: 20140122
  3. FLUOROURACIL [Suspect]
     Indication: COLON CANCER
     Dates: start: 20131112, end: 20140122

REACTIONS (1)
  - Conjunctivitis [Not Recovered/Not Resolved]
